FAERS Safety Report 10089234 (Version 1)
Quarter: 2014Q2

REPORT INFORMATION
  Report Type: Spontaneous
  Country: US (occurrence: None)
  Receive Date: 20140418
  Receipt Date: 20140418
  Transmission Date: 20141212
  Serious: Yes (Life-Threatening, Hospitalization)
  Sender: FDA-Public Use
  Company Number: None

PATIENT
  Age: 50 Year
  Sex: Male
  Weight: 85.73 kg

DRUGS (1)
  1. HUMIRA 1 SHOT [Suspect]
     Indication: COLITIS ULCERATIVE
     Dosage: 1 SHOT  TWICE PER MONTH GIVEN INTO/UNDER THE SKIN
     Route: 058
     Dates: start: 20130401, end: 20131230

REACTIONS (5)
  - Haemoglobin decreased [None]
  - Pain [None]
  - Musculoskeletal disorder [None]
  - Abasia [None]
  - Movement disorder [None]
